FAERS Safety Report 7428397-9 (Version None)
Quarter: 2011Q2

REPORT INFORMATION
  Report Type: 
  Country: None (occurrence: None)
  Receive Date: 20110418
  Receipt Date: 20110418
  Transmission Date: 20111010
  Serious: Yes (Hospitalization)
  Sender: FDA-Public Use
  Company Number: None

PATIENT
  Age: 65 Year
  Sex: Male

DRUGS (2)
  1. BACTRIM [Suspect]
     Indication: CELLULITIS
     Dosage: 1 TAB QDAY PO
     Route: 048
  2. CLINDAMYCIN [Suspect]
     Indication: CELLULITIS
     Dosage: 2 CAPS QID PO
     Route: 048

REACTIONS (2)
  - THROMBOCYTOPENIA [None]
  - PETECHIAE [None]
